FAERS Safety Report 5262479-5 (Version None)
Quarter: 2007Q1

REPORT INFORMATION
  Report Type: 
  Country: None (occurrence: None)
  Receive Date: 20070312
  Receipt Date: 20070301
  Transmission Date: 20070707
  Serious: Yes (Other)
  Sender: FDA-Public Use
  Company Number: JP-ROCHE-484576

PATIENT
  Age: 10 Year
  Sex: Male
  Weight: 27 kg

DRUGS (4)
  1. TAMIFLU [Suspect]
     Route: 048
     Dates: start: 20070219, end: 20070219
  2. MUCODYNE [Concomitant]
     Route: 048
     Dates: start: 20070219, end: 20070223
  3. ACDEAM [Concomitant]
     Route: 048
     Dates: start: 20070219, end: 20070223
  4. BISOLVON [Concomitant]
     Route: 048
     Dates: start: 20070219, end: 20070223

REACTIONS (3)
  - ABNORMAL BEHAVIOUR [None]
  - DEPRESSED LEVEL OF CONSCIOUSNESS [None]
  - DYSPNOEA [None]
